FAERS Safety Report 9036748 (Version 1)
Quarter: 2013Q1

REPORT INFORMATION
  Report Type: Spontaneous
  Country: GB (occurrence: None)
  Receive Date: 20130114
  Receipt Date: 20130114
  Transmission Date: 20140127
  Serious: Yes (Hospitalization)
  Sender: FDA-Public Use
  Company Number: AUR-APL-2013-00076

PATIENT
  Age: 65 Year
  Sex: Male

DRUGS (4)
  1. CITALOPRAM (CITALOPRAM) [Suspect]
     Indication: ANXIETY
     Route: 048
  2. CITALOPRAM (CITALOPRAM) [Suspect]
     Indication: DEPRESSION
     Route: 048
  3. AMISULPRIDE (AMISULPRIDE) [Concomitant]
  4. CLOZAPINE (CLOZAPINE) [Concomitant]

REACTIONS (6)
  - Drug effect decreased [None]
  - Abdominal pain upper [None]
  - Fall [None]
  - Malaise [None]
  - Prescribed overdose [None]
  - Haematemesis [None]
